FAERS Safety Report 21335934 (Version 1)
Quarter: 2022Q3

REPORT INFORMATION
  Report Type: Spontaneous
  Country: US (occurrence: US)
  Receive Date: 20220915
  Receipt Date: 20220915
  Transmission Date: 20221027
  Serious: Yes (Other)
  Sender: FDA-Public Use
  Company Number: US-AUROBINDO-AUR-APL-2022-036483

PATIENT
  Age: 36 Year
  Sex: Female

DRUGS (13)
  1. PREDNISONE [Suspect]
     Active Substance: PREDNISONE
     Indication: Product used for unknown indication
     Dosage: 60 MILLIGRAM, ONCE A DAY
     Route: 048
  2. PREDNISONE [Suspect]
     Active Substance: PREDNISONE
     Dosage: 35 MILLIGRAM, ONCE A DAY
     Route: 048
  3. PREDNISONE [Suspect]
     Active Substance: PREDNISONE
     Dosage: 4 MILLIGRAM, ONCE A DAY
     Route: 048
  4. INFLIXIMAB [Suspect]
     Active Substance: INFLIXIMAB
     Indication: Product used for unknown indication
     Dosage: 5 MILLIGRAM/KILOGRAM
     Route: 065
  5. INFLIXIMAB [Suspect]
     Active Substance: INFLIXIMAB
     Dosage: UNK, 62:34 MICROGRAM PER MILLILITRE
     Route: 065
  6. INFLIXIMAB [Suspect]
     Active Substance: INFLIXIMAB
     Dosage: UNK, 18.2 MICROGRAM PER MILLILITRE
     Route: 065
  7. INFLIXIMAB [Suspect]
     Active Substance: INFLIXIMAB
     Dosage: 10 MILLIGRAM/KILOGRAM, EVERY 4 WEEKS
     Route: 065
  8. INFLIXIMAB [Suspect]
     Active Substance: INFLIXIMAB
     Dosage: 30.8 MICROGRAM PER MILLILITRE
     Route: 065
  9. AZITHROMYCIN [Concomitant]
     Active Substance: AZITHROMYCIN
     Indication: Gastroenteritis Escherichia coli
     Dosage: UNK
     Route: 065
  10. CIPROFLOXACIN [Concomitant]
     Active Substance: CIPROFLOXACIN
     Indication: Yersinia infection
     Dosage: UNK
     Route: 065
  11. FIDAXOMICIN [Concomitant]
     Active Substance: FIDAXOMICIN
     Indication: Product used for unknown indication
     Dosage: UNK
     Route: 065
  12. MESALAMINE [Concomitant]
     Active Substance: MESALAMINE
     Indication: Proctitis
     Dosage: 4.8 GRAM, ONCE A DAY
     Route: 054
  13. VEDOLIZUMAB [Concomitant]
     Active Substance: VEDOLIZUMAB
     Indication: Product used for unknown indication
     Dosage: UNK, EVERY 8 WEEKS
     Route: 065

REACTIONS (3)
  - Colitis ulcerative [Unknown]
  - Rebound effect [Unknown]
  - Exposure during pregnancy [Unknown]
